FAERS Safety Report 6788620-0 (Version None)
Quarter: 2010Q2

REPORT INFORMATION
  Report Type: 
  Country: None (occurrence: None)
  Receive Date: 20100623
  Receipt Date: 20080407
  Transmission Date: 20101027
  Serious: No
  Sender: FDA-Public Use
  Company Number: US-PFIZER INC-2008030639

PATIENT
  Sex: Female
  Weight: 55.454 kg

DRUGS (5)
  1. XALATAN [Suspect]
     Indication: GLAUCOMA
  2. SYNTHROID [Concomitant]
     Indication: THYROID DISORDER
  3. COZAAR [Concomitant]
  4. ZOCOR [Concomitant]
  5. HYDROCHLOROTHIAZIDE [Concomitant]

REACTIONS (1)
  - EYE PRURITUS [None]
